FAERS Safety Report 8494412-7 (Version None)
Quarter: 2012Q3

REPORT INFORMATION
  Report Type: 
  Country: None (occurrence: None)
  Receive Date: 20120709
  Receipt Date: 20120628
  Transmission Date: 20120928
  Serious: Yes (Other)
  Sender: FDA-Public Use
  Company Number: US-US-EMD SERONO, INC.-7071098

PATIENT
  Sex: Female
  Weight: 81 kg

DRUGS (5)
  1. PREMPHASE 14/14 [Concomitant]
  2. REBIF [Suspect]
     Indication: MULTIPLE SCLEROSIS
     Route: 058
     Dates: start: 20060713
  3. THYROID REPLACEMENT [Concomitant]
  4. IBUPROFEN [Concomitant]
     Indication: PREMEDICATION
     Dates: start: 20060701
  5. BACLOFEN [Concomitant]
     Dates: start: 20060601

REACTIONS (8)
  - BREAST DYSPLASIA [None]
  - ARTHRALGIA [None]
  - INJECTION SITE ERYTHEMA [None]
  - MENORRHAGIA [None]
  - INJECTION SITE PAIN [None]
  - ALOPECIA [None]
  - CERVICAL DYSPLASIA [None]
  - HYPOTHYROIDISM [None]
